FAERS Safety Report 5361580-5 (Version None)
Quarter: 2007Q2

REPORT INFORMATION
  Report Type: 
  Country: None (occurrence: None)
  Receive Date: 20070619
  Receipt Date: 20070611
  Transmission Date: 20071010
  Serious: Yes (Death)
  Sender: FDA-Public Use
  Company Number: PHBS2007JP08586

PATIENT
  Age: 57 Year
  Sex: Male

DRUGS (2)
  1. SANDIMMUNE [Suspect]
     Indication: APLASTIC ANAEMIA
     Route: 048
  2. NEORAL [Suspect]
     Indication: APLASTIC ANAEMIA
     Route: 048

REACTIONS (2)
  - APLASTIC ANAEMIA [None]
  - GASTRIC CANCER [None]
